FAERS Safety Report 8330417-4 (Version None)
Quarter: 2012Q2

REPORT INFORMATION
  Report Type: 
  Country: None (occurrence: None)
  Receive Date: 20120502
  Receipt Date: 20120403
  Transmission Date: 20120825
  Serious: Yes (Other)
  Sender: FDA-Public Use
  Company Number: US-AMGEN-USASP2011047333

PATIENT
  Age: 69 Year
  Sex: Female
  Weight: 55.3 kg

DRUGS (9)
  1. HUMIRA [Concomitant]
     Dosage: UNK
  2. ALENDRONATE SODIUM [Concomitant]
     Indication: OSTEOPENIA
     Dosage: 70 UNK, QWK
     Route: 048
  3. ENBREL [Suspect]
     Dosage: 50 MG, QWK
  4. ZOLPIDEM [Concomitant]
     Indication: INSOMNIA
     Dosage: 10 UNK, QHS
     Route: 048
  5. ENBREL [Suspect]
     Indication: PSORIATIC ARTHROPATHY
     Dosage: 50 MG, QWK
     Route: 058
     Dates: end: 20111001
  6. ENBREL [Suspect]
     Dosage: 50 MG, QWK
     Dates: start: 20030301
  7. SYNTHROID [Concomitant]
     Indication: HYPOTHYROIDISM
     Dosage: UNK UNK, QD
     Route: 048
  8. ACIPHEX [Concomitant]
     Indication: GASTROOESOPHAGEAL REFLUX DISEASE
     Dosage: 20 UNK, QD
     Route: 048
  9. DICLOFENAC [Concomitant]
     Indication: RHEUMATOID ARTHRITIS
     Dosage: 75 UNK, BID
     Route: 048

REACTIONS (3)
  - PSORIASIS [None]
  - LUPUS-LIKE SYNDROME [None]
  - THERAPEUTIC RESPONSE DECREASED [None]
